FAERS Safety Report 13869397 (Version 2)
Quarter: 2017Q3

REPORT INFORMATION
  Report Type: Spontaneous
  Country: GB (occurrence: GB)
  Receive Date: 20170815
  Receipt Date: 20170907
  Transmission Date: 20171127
  Serious: Yes (Hospitalization, Other)
  Sender: FDA-Public Use
  Company Number: GB-PFIZER INC-2017350367

PATIENT
  Age: 71 Year
  Sex: Female

DRUGS (9)
  1. CARMELLOSE [Concomitant]
     Dosage: 0.8 ML, 5 TIMES A DAY ( 0.4ML BOTH EYES)
     Route: 050
  2. OMEPRAZOLE. [Concomitant]
     Active Substance: OMEPRAZOLE
     Dosage: 10 MG, 1X/DAY
  3. SIMVASTATIN. [Concomitant]
     Active Substance: SIMVASTATIN
     Dosage: 40 MG, 1X/DAY (NIGHT)
  4. COCODAMOL [Concomitant]
     Active Substance: ACETAMINOPHEN\CODEINE PHOSPHATE
     Dosage: 2 DF, 1X/DAY (NIGHT) (15MG/500MG)
  5. FOLIC ACID. [Concomitant]
     Active Substance: FOLIC ACID
     Dosage: 5 MG, 6 TIMES A WEEK (NOT ON TUESDAYS)
  6. PARACETAMOL [Concomitant]
     Active Substance: ACETAMINOPHEN
     Dosage: 1 G, AS NEEDED (4 TIMES DAILY)
  7. EVACAL D3 [Concomitant]
     Dosage: 1 DF, 2X/DAY (1500MG/400UNIT)
  8. CLOPIDOGREL [Concomitant]
     Active Substance: CLOPIDOGREL BISULFATE
     Dosage: 75 MG, 1X/DAY (HELD DUE TO LOW PLATELETS/PANCYTOPENIA)
  9. METHOTREXATE SODIUM. [Suspect]
     Active Substance: METHOTREXATE SODIUM
     Dosage: 20 MG, WEEKLY

REACTIONS (3)
  - Clostridium difficile infection [Unknown]
  - Pancytopenia [Recovered/Resolved]
  - Blast cells present [Unknown]
